FAERS Safety Report 4564015-5 (Version None)
Quarter: 2005Q1

REPORT INFORMATION
  Report Type: 
  Country: None (occurrence: None)
  Receive Date: 20050126
  Receipt Date: 20041126
  Transmission Date: 20050727
  Serious: Yes (Hospitalization)
  Sender: FDA-Public Use
  Company Number: 8007480

PATIENT
  Age: 41 Year
  Sex: Female
  Weight: 72 kg

DRUGS (8)
  1. KEPPRA [Suspect]
     Indication: EPILEPSY
     Dosage: 1000 MG /D PO
     Route: 048
     Dates: start: 20040325, end: 20040420
  2. KEPPRA [Suspect]
     Indication: EPILEPSY
     Dosage: 2000 MG/ D PO
     Route: 048
     Dates: start: 20040421, end: 20040924
  3. KEPPRA [Suspect]
     Indication: EPILEPSY
     Dosage: 70000 MG ONCE PO
     Route: 048
     Dates: start: 20040925, end: 20040925
  4. KEPPRA [Suspect]
     Indication: EPILEPSY
     Dosage: PO
     Route: 048
  5. LORAZEPAM [Concomitant]
  6. MIRTAZAPINE [Concomitant]
  7. OXCARBAZEPINE [Concomitant]
  8. AMITRIPTYLINE [Concomitant]

REACTIONS (6)
  - CONVULSION [None]
  - DISSOCIATIVE DISORDER [None]
  - DRUG INEFFECTIVE [None]
  - INTENTIONAL MISUSE [None]
  - PSYCHOTIC DISORDER [None]
  - SUICIDE ATTEMPT [None]
